FAERS Safety Report 7293026-4 (Version None)
Quarter: 2011Q1

REPORT INFORMATION
  Report Type: 
  Country: None (occurrence: None)
  Receive Date: 20110210
  Receipt Date: 20110210
  Transmission Date: 20110831
  Serious: Yes (Hospitalization)
  Sender: FDA-Public Use
  Company Number: None

PATIENT
  Age: 51 Year
  Sex: Female
  Weight: 67.2 kg

DRUGS (7)
  1. OLANZAPINE [Suspect]
     Dosage: 5 MG BID PO
     Route: 048
  2. FEXOFENADINE [Concomitant]
  3. PHENOBARBITAL TAB [Concomitant]
  4. OLANZAPINE [Suspect]
     Indication: BIPOLAR DISORDER
     Dosage: 20 MG QHS PO
     Route: 048
     Dates: start: 20060101, end: 20110126
  5. TRAZODONE HCL [Concomitant]
  6. FLUPHENAZINE [Concomitant]
  7. FLUOXETINE [Concomitant]

REACTIONS (1)
  - HYPOTHERMIA [None]
